FAERS Safety Report 24309168 (Version 1)
Quarter: 2024Q3

REPORT INFORMATION
  Report Type: Report from Study
  Country: US (occurrence: US)
  Receive Date: 20240911
  Receipt Date: 20240911
  Transmission Date: 20241016
  Serious: Yes (Other)
  Sender: ABBVIE
  Company Number: US-ABBVIE-5908773

PATIENT
  Sex: Male

DRUGS (2)
  1. SKYRIZI [Suspect]
     Active Substance: RISANKIZUMAB-RZAA
     Indication: Product used for unknown indication
     Route: 058
  2. TALTZ [Suspect]
     Active Substance: IXEKIZUMAB
     Indication: Product used for unknown indication
     Route: 065

REACTIONS (6)
  - Epilepsy [Recovered/Resolved]
  - Therapeutic product effect decreased [Recovering/Resolving]
  - Condition aggravated [Recovering/Resolving]
  - Anaemia [Recovering/Resolving]
  - Seizure [Recovering/Resolving]
  - Sleep apnoea syndrome [Unknown]

NARRATIVE: CASE EVENT DATE: 20240801
